FAERS Safety Report 4665019-4 (Version None)
Quarter: 2005Q2

REPORT INFORMATION
  Report Type: 
  Country: None (occurrence: None)
  Receive Date: 20050518
  Receipt Date: 20050518
  Transmission Date: 20051028
  Serious: Yes (Life-Threatening, Hospitalization)
  Sender: FDA-Public Use
  Company Number: None

PATIENT
  Age: 20 Year
  Sex: Male
  Weight: 91.3 kg

DRUGS (14)
  1. HEPARIN [Suspect]
     Indication: PROPHYLAXIS
     Dosage: 5000 UNITS SQ Q 12 HRS
     Route: 058
     Dates: start: 20050304, end: 20050308
  2. LOVENOX [Suspect]
     Indication: THROMBOSIS PROPHYLAXIS
     Dosage: 40 MG SQ QD / 70 MG SQ
     Route: 058
     Dates: start: 20050308, end: 20050311
  3. LOVENOX [Suspect]
     Indication: THROMBOSIS PROPHYLAXIS
     Dosage: 40 MG SQ QD / 70 MG SQ
     Route: 058
     Dates: start: 20050311, end: 20050316
  4. BISCODYL, SENNA/DOCUSATE, SENNA SYRUP [Concomitant]
  5. PERIDEX [Concomitant]
  6. DOPAMINE HCL [Concomitant]
  7. PEPCID [Concomitant]
  8. KEPPRA [Concomitant]
  9. MANNITOL [Concomitant]
  10. OSMOLITE [Concomitant]
  11. PHENYLEPHRINE [Concomitant]
  12. PHENYTOIN [Concomitant]
  13. THIOPENTAL SODIUM [Concomitant]
  14. VALPROATE SODIUM [Concomitant]

REACTIONS (2)
  - HEPARIN-INDUCED THROMBOCYTOPENIA [None]
  - VENOUS THROMBOSIS LIMB [None]
